FAERS Safety Report 5250279-1 (Version None)
Quarter: 2007Q1

REPORT INFORMATION
  Report Type: 
  Country: None (occurrence: None)
  Receive Date: 20070228
  Receipt Date: 20060315
  Transmission Date: 20070707
  Serious: No
  Sender: FDA-Public Use
  Company Number: US-GLAXOSMITHKLINE-A0597704A

PATIENT
  Age: 32 Year
  Sex: Male

DRUGS (3)
  1. LAMICTAL [Suspect]
     Dosage: 25MG UNKNOWN
     Route: 048
     Dates: start: 20060301
  2. CLONAZEPAM [Concomitant]
  3. LEXAPRO [Concomitant]

REACTIONS (4)
  - AGITATION [None]
  - HEART RATE INCREASED [None]
  - HYPERHIDROSIS [None]
  - PANIC ATTACK [None]
